FAERS Safety Report 5732366-4 (Version None)
Quarter: 2008Q2

REPORT INFORMATION
  Report Type: 
  Country: None (occurrence: None)
  Receive Date: 20080508
  Receipt Date: 20080428
  Transmission Date: 20081010
  Serious: Yes (Hospitalization)
  Sender: FDA-Public Use
  Company Number: FR-PFIZER INC-2008037543

PATIENT
  Age: 74 Year
  Sex: Male

DRUGS (8)
  1. AMLOR [Suspect]
     Indication: HYPERTENSION
     Route: 048
  2. ATENOLOL [Interacting]
     Indication: HYPERTENSION
     Route: 048
  3. PERINDOPRIL ERBUMINE [Interacting]
     Indication: HYPERTENSION
     Route: 048
  4. MOLSIDOMINE [Interacting]
     Indication: MYOCARDIAL INFARCTION
     Route: 048
  5. TAHOR [Concomitant]
  6. NEXIUM [Concomitant]
  7. VASTAREL [Concomitant]
  8. ASPIRIN [Concomitant]

REACTIONS (5)
  - DRUG INTERACTION [None]
  - FALL [None]
  - HYPOTENSION [None]
  - LOSS OF CONSCIOUSNESS [None]
  - MALAISE [None]
